FAERS Safety Report 15805743 (Version 2)
Quarter: 2019Q1

REPORT INFORMATION
  Report Type: Spontaneous
  Country: US (occurrence: US)
  Receive Date: 20190110
  Receipt Date: 20190222
  Transmission Date: 20190417
  Serious: No
  Sender: FDA-Public Use
  Company Number: US-SA-2019SA006683

PATIENT
  Age: 52 Year
  Sex: Male

DRUGS (2)
  1. WELCHOL [Suspect]
     Active Substance: COLESEVELAM HYDROCHLORIDE
     Indication: BILE ACID MALABSORPTION
     Dosage: UNK
     Route: 065
     Dates: start: 2018
  2. WELCHOL [Suspect]
     Active Substance: COLESEVELAM HYDROCHLORIDE
     Indication: DEHYDRATION

REACTIONS (2)
  - Off label use [Not Recovered/Not Resolved]
  - Dehydration [Not Recovered/Not Resolved]
